FAERS Safety Report 13870629 (Version 4)
Quarter: 2017Q3

REPORT INFORMATION
  Report Type: Spontaneous
  Country: JP (occurrence: JP)
  Receive Date: 20170816
  Receipt Date: 20170918
  Transmission Date: 20171127
  Serious: Yes (Other)
  Sender: FDA-Public Use
  Company Number: JP-BAXTER-2017BAX029669

PATIENT
  Age: 61 Year
  Sex: Male
  Weight: 72 kg

DRUGS (10)
  1. ROCURONIUM [Suspect]
     Active Substance: ROCURONIUM BROMIDE
     Indication: HYPOTONIA
     Route: 065
     Dates: start: 20161226, end: 201612
  2. ROPIVACAINE [Concomitant]
     Active Substance: ROPIVACAINE
     Indication: PAIN MANAGEMENT
     Dosage: 7-12 ML INTERMITTENTLY INFUSED
     Route: 008
     Dates: start: 201612, end: 201612
  3. FENTANYL. [Suspect]
     Active Substance: FENTANYL
     Indication: INDUCTION OF ANAESTHESIA
     Route: 065
     Dates: start: 20161226, end: 201612
  4. REMIFENTANIL [Suspect]
     Active Substance: REMIFENTANIL
     Indication: PAIN MANAGEMENT
     Dosage: 600-800 MICROGRAM/HOUR (CONTINUOUS ADMINISTRATION)
     Route: 065
     Dates: start: 20161226, end: 201612
  5. SUPRANE [Suspect]
     Active Substance: DESFLURANE
     Indication: MAINTENANCE OF ANAESTHESIA
     Dosage: 4-4.5% WITH OXYGEN 1L/MIN + AIR 1L/MIN, APPROXIMATELY 220-250 ML
     Route: 055
     Dates: start: 20161226, end: 201612
  6. MORPHINE [Concomitant]
     Active Substance: MORPHINE
     Indication: PAIN MANAGEMENT
     Route: 008
     Dates: start: 20161226, end: 201612
  7. ROCURONIUM [Suspect]
     Active Substance: ROCURONIUM BROMIDE
     Indication: MAINTENANCE OF ANAESTHESIA
     Route: 041
  8. PROPOFOL. [Concomitant]
     Active Substance: PROPOFOL
     Indication: INDUCTION OF ANAESTHESIA
     Route: 065
     Dates: start: 20161226, end: 201612
  9. DOPAMINE [Concomitant]
     Active Substance: DOPAMINE\DOPAMINE HYDROCHLORIDE
     Indication: BLOOD PRESSURE MANAGEMENT
     Dosage: CONTINUOUS ADMINISTRATION DURING OPERATION
     Route: 065
     Dates: start: 20161226, end: 201612
  10. SUGAMMADEX [Concomitant]
     Active Substance: SUGAMMADEX
     Indication: ANAESTHESIA REVERSAL
     Route: 065
     Dates: start: 201612, end: 201612

REACTIONS (2)
  - Serotonin syndrome [Recovered/Resolved]
  - Delayed recovery from anaesthesia [Recovered/Resolved]

NARRATIVE: CASE EVENT DATE: 201612
